FAERS Safety Report 6053547-9 (Version None)
Quarter: 2009Q1

REPORT INFORMATION
  Report Type: 
  Country: None (occurrence: None)
  Receive Date: 20090127
  Receipt Date: 20080815
  Transmission Date: 20090719
  Serious: Yes (Other)
  Sender: FDA-Public Use
  Company Number: US-TEVA-176091USA

PATIENT
  Sex: Female

DRUGS (2)
  1. COPAXONE [Suspect]
     Indication: MULTIPLE SCLEROSIS
     Route: 058
     Dates: start: 20061001
  2. VITAMINS NOS [Concomitant]

REACTIONS (7)
  - ANGIOEDEMA [None]
  - DYSPNOEA [None]
  - PERIORBITAL OEDEMA [None]
  - SKIN LESION [None]
  - THROAT IRRITATION [None]
  - TONGUE DISORDER [None]
  - URTICARIA [None]
